FAERS Safety Report 7101789-3 (Version None)
Quarter: 2010Q4

REPORT INFORMATION
  Report Type: 
  Country: None (occurrence: None)
  Receive Date: 20101108
  Receipt Date: 20101025
  Transmission Date: 20110411
  Serious: Yes (Hospitalization)
  Sender: FDA-Public Use
  Company Number: FR-2010-2460

PATIENT
  Sex: Female

DRUGS (4)
  1. NAVELBINE [Suspect]
     Indication: METASTATIC NEOPLASM
     Dosage: 30.5 MG QD
     Dates: start: 20100827, end: 20100827
  2. CISPLATIN [Suspect]
     Indication: METASTATIC NEOPLASM
     Dosage: 65 MG QD
     Dates: start: 20100827, end: 20100827
  3. SOLU-MEDROL [Concomitant]
  4. ZOPHREN [Concomitant]

REACTIONS (9)
  - ARTERIAL HAEMORRHAGE [None]
  - BLOOD PRESSURE INCREASED [None]
  - CHEST PAIN [None]
  - DYSPNOEA [None]
  - HEART RATE INCREASED [None]
  - LABORATORY TEST ABNORMAL [None]
  - OXYGEN SATURATION DECREASED [None]
  - PROCEDURAL COMPLICATION [None]
  - REFUSAL OF TREATMENT BY PATIENT [None]
